FAERS Safety Report 24660228 (Version 1)
Quarter: 2024Q4

REPORT INFORMATION
  Report Type: Spontaneous
  Country: AU (occurrence: AU)
  Receive Date: 20241125
  Receipt Date: 20241125
  Transmission Date: 20250115
  Serious: Yes (Death, Life-Threatening, Hospitalization, Other)
  Sender: SANDOZ
  Company Number: AU-002147023-NVSC2022AU297817

PATIENT
  Age: 58 Year
  Sex: Male
  Weight: 143.2 kg

DRUGS (30)
  1. CYCLOPHOSPHAMIDE [Suspect]
     Active Substance: CYCLOPHOSPHAMIDE
     Dosage: 1260 MG
     Route: 042
     Dates: start: 20230125, end: 20230125
  2. CYCLOPHOSPHAMIDE [Suspect]
     Active Substance: CYCLOPHOSPHAMIDE
     Dosage: 1260 MG
     Route: 042
     Dates: start: 20230126, end: 20230126
  3. CYCLOPHOSPHAMIDE [Suspect]
     Active Substance: CYCLOPHOSPHAMIDE
     Dosage: 1260 MG
     Route: 042
     Dates: start: 20230127
  4. CYCLOPHOSPHAMIDE [Suspect]
     Active Substance: CYCLOPHOSPHAMIDE
     Indication: B-cell lymphoma
     Dosage: 1280 MG
     Route: 042
     Dates: start: 20221209, end: 20221209
  5. CYCLOPHOSPHAMIDE [Suspect]
     Active Substance: CYCLOPHOSPHAMIDE
     Dosage: 1280 MG
     Route: 042
     Dates: start: 20221210, end: 20221210
  6. CYCLOPHOSPHAMIDE [Suspect]
     Active Substance: CYCLOPHOSPHAMIDE
     Dosage: 1280 MG
     Route: 042
     Dates: start: 20221211, end: 20221211
  7. FLUDARABINE [Suspect]
     Active Substance: FLUDARABINE PHOSPHATE
     Indication: B-cell lymphoma
     Dosage: 75 MG
     Route: 042
     Dates: start: 20221209, end: 20221209
  8. FLUDARABINE [Suspect]
     Active Substance: FLUDARABINE PHOSPHATE
     Dosage: 75 MG
     Route: 042
     Dates: start: 20221210, end: 20221210
  9. FLUDARABINE [Suspect]
     Active Substance: FLUDARABINE PHOSPHATE
     Dosage: 75 MG
     Route: 042
     Dates: start: 20221211, end: 20221211
  10. FLUDARABINE [Suspect]
     Active Substance: FLUDARABINE PHOSPHATE
     Dosage: 75 MG
     Route: 042
     Dates: start: 20230125, end: 20230125
  11. FLUDARABINE [Suspect]
     Active Substance: FLUDARABINE PHOSPHATE
     Dosage: 75 MG
     Route: 042
     Dates: start: 20230126, end: 20230126
  12. FLUDARABINE [Suspect]
     Active Substance: FLUDARABINE PHOSPHATE
     Dosage: 75 MG
     Route: 042
     Dates: start: 20230127, end: 20230127
  13. FLUDARABINE [Suspect]
     Active Substance: FLUDARABINE PHOSPHATE
     Dosage: 9.58X10^7
     Route: 042
     Dates: start: 20221214
  14. ALLOPURINOL [Concomitant]
     Active Substance: ALLOPURINOL
     Indication: Gout
     Dosage: UNK
     Route: 048
     Dates: start: 2022
  15. ALLOPURINOL [Concomitant]
     Active Substance: ALLOPURINOL
     Indication: Prophylaxis
  16. ATORVASTATIN [Concomitant]
     Active Substance: ATORVASTATIN
     Indication: Hypercholesterolaemia
     Dosage: UNK
     Route: 048
     Dates: start: 2022
  17. ENOXAPARIN [Concomitant]
     Active Substance: ENOXAPARIN
     Indication: Anticoagulant therapy
     Dosage: UNK
     Route: 058
     Dates: start: 20221215, end: 20230105
  18. ENOXAPARIN [Concomitant]
     Active Substance: ENOXAPARIN
     Indication: Prophylaxis
  19. ENTECAVIR [Concomitant]
     Active Substance: ENTECAVIR
     Indication: Antiviral prophylaxis
     Dosage: UNK
     Route: 048
     Dates: start: 20221209
  20. ENTECAVIR [Concomitant]
     Active Substance: ENTECAVIR
     Dosage: UNK
     Route: 048
     Dates: start: 20221220
  21. FLUCONAZOLE [Concomitant]
     Active Substance: FLUCONAZOLE
     Indication: Antifungal prophylaxis
     Dosage: UNK
     Route: 048
     Dates: start: 20221219
  22. METOCLOPRAMIDE [Concomitant]
     Active Substance: METOCLOPRAMIDE
     Indication: Prophylaxis of nausea and vomiting
     Dosage: UNK
     Route: 048
     Dates: start: 20221209
  23. OXYMETAZOLINE [Concomitant]
     Active Substance: OXYMETAZOLINE
     Indication: Nasal congestion
     Dosage: UNK
     Route: 065
     Dates: start: 20221219
  24. ACETAMINOPHEN [Concomitant]
     Active Substance: ACETAMINOPHEN
     Indication: Pyrexia
     Dosage: UNK, PRN
     Route: 048
  25. ACETAMINOPHEN [Concomitant]
     Active Substance: ACETAMINOPHEN
     Indication: Chemotherapy side effect prophylaxis
  26. ACETAMINOPHEN [Concomitant]
     Active Substance: ACETAMINOPHEN
     Indication: Nausea
  27. PERINDOPRIL [Concomitant]
     Active Substance: PERINDOPRIL
     Indication: Hypertension
     Dosage: UNK
     Route: 048
     Dates: start: 2020
  28. SODIUM CHLORIDE [Concomitant]
     Active Substance: SODIUM CHLORIDE
     Indication: Nasal congestion
     Dosage: UNK
     Route: 045
     Dates: start: 20221214
  29. VALACYCLOVIR [Concomitant]
     Active Substance: VALACYCLOVIR HYDROCHLORIDE
     Indication: Antiviral prophylaxis
     Dosage: UNK
     Route: 048
     Dates: start: 20221209
  30. LAMIVUDINE [Concomitant]
     Active Substance: LAMIVUDINE
     Indication: Chronic hepatitis
     Dosage: UNK
     Route: 048
     Dates: start: 2022

REACTIONS (21)
  - B-cell lymphoma [Fatal]
  - Malignant neoplasm progression [Fatal]
  - Febrile neutropenia [Recovered/Resolved]
  - Moraxella infection [Recovered/Resolved]
  - Pneumocystis jirovecii pneumonia [Recovered/Resolved]
  - Klebsiella sepsis [Recovered/Resolved]
  - Pneumonia moraxella [Unknown]
  - Haematuria [Recovered/Resolved]
  - Hypotension [Unknown]
  - Tachypnoea [Unknown]
  - Thrombocytopenia [Unknown]
  - Neutropenia [Unknown]
  - Cytokine release syndrome [Recovered/Resolved]
  - Upper airway obstruction [Recovering/Resolving]
  - Hypoxia [Unknown]
  - Tachycardia [Unknown]
  - Respiratory disorder [Unknown]
  - Hypervolaemia [Unknown]
  - Dyspnoea [Unknown]
  - Malaise [Unknown]
  - Pyrexia [Unknown]

NARRATIVE: CASE EVENT DATE: 20221210
